FAERS Safety Report 8929183 (Version 3)
Quarter: 2013Q1

REPORT INFORMATION
  Report Type: Spontaneous
  Country: JP (occurrence: JP)
  Receive Date: 20121127
  Receipt Date: 20130215
  Transmission Date: 20140127
  Serious: Yes (Death, Hospitalization)
  Sender: FDA-Public Use
  Company Number: PHHY2012JP108283

PATIENT
  Age: 43 Year
  Sex: Female

DRUGS (4)
  1. 5-FLUOROURACIL [Suspect]
     Indication: COLON CANCER METASTATIC
     Dosage: 400 MG/M2, UNK
  2. 5-FLUOROURACIL [Suspect]
     Dosage: 2400 MG/M2, UNK
  3. OXALIPLATIN [Suspect]
     Indication: COLON CANCER METASTATIC
     Dosage: 85 MG/M2, UNK
  4. FOLINIC ACID [Suspect]
     Indication: COLON CANCER METASTATIC
     Dosage: 200 MG/M2, UNK

REACTIONS (10)
  - Death [Fatal]
  - Posterior reversible encephalopathy syndrome [Recovered/Resolved]
  - Nausea [Unknown]
  - Headache [Unknown]
  - Altered state of consciousness [Unknown]
  - Visual impairment [Unknown]
  - Hypertension [Recovered/Resolved]
  - Grand mal convulsion [Recovered/Resolved]
  - Status epilepticus [Recovered/Resolved]
  - Colon cancer [Unknown]
